FAERS Safety Report 21811430 (Version 3)
Quarter: 2023Q1

REPORT INFORMATION
  Report Type: Spontaneous
  Country: US (occurrence: US)
  Receive Date: 20230103
  Receipt Date: 20230112
  Transmission Date: 20230418
  Serious: No
  Sender: FDA-Public Use
  Company Number: US-PFIZER INC-202201401878

PATIENT
  Age: 61 Year
  Sex: Female
  Weight: 89.81 kg

DRUGS (14)
  1. PAXLOVID [Suspect]
     Active Substance: NIRMATRELVIR\RITONAVIR
     Indication: COVID-19 treatment
     Dosage: [PF-07321332 300 MG]/[RITONAVIR 100 MG]; 2X/DAY (IN THE MORNING AND AT NIGHT)
     Dates: start: 20221226
  2. ELIQUIS [Concomitant]
     Active Substance: APIXABAN
     Indication: Thrombosis
     Dosage: 5 MG, 2X/DAY
  3. FLUOXETINE [Concomitant]
     Active Substance: FLUOXETINE HYDROCHLORIDE
     Indication: Bipolar disorder
     Dosage: 20 MG, 1X/DAY
     Dates: start: 2002
  4. QUETIAPINE [Concomitant]
     Active Substance: QUETIAPINE
     Indication: Bipolar disorder
     Dosage: BETWEEN 600MG AND 800MG
     Dates: start: 2002
  5. QUETIAPINE [Concomitant]
     Active Substance: QUETIAPINE
     Dosage: 400 MG, 1X/DAY (400MG ONCE A DAY AT BEDTIME)
  6. CARBAMAZEPINE [Concomitant]
     Active Substance: CARBAMAZEPINE
     Indication: Affective disorder
     Dosage: 200 MG, 3X/DAY
     Dates: start: 2002
  7. FOLIC ACID [Concomitant]
     Active Substance: FOLIC ACID
     Indication: Alopecia
     Dosage: 1000 UG, 1X/DAY
     Dates: start: 202203
  8. COLLAGEN [Concomitant]
     Active Substance: COLLAGEN
     Indication: Alopecia
     Dosage: 750 MG, 1X/DAY
     Dates: start: 202203
  9. REXULTI [Concomitant]
     Active Substance: BREXPIPRAZOLE
     Indication: Bipolar disorder
     Dosage: 2 MG, 1X/DAY
     Dates: start: 2014
  10. CARVEDILOL [Concomitant]
     Active Substance: CARVEDILOL
     Indication: Blood pressure measurement
     Dosage: 6.25 MG, 2X/DAY
  11. OMEPRAZOLE [Concomitant]
     Active Substance: OMEPRAZOLE
     Indication: Weight decreased
     Dosage: 20 MG, 1X/DAY
     Dates: start: 202202
  12. GABAPENTIN [Concomitant]
     Active Substance: GABAPENTIN
     Indication: Spinal operation
     Dosage: 100 MG, 3X/DAY
  13. GABAPENTIN [Concomitant]
     Active Substance: GABAPENTIN
     Dosage: 300 MG, 2X/DAY (BUT PRESCRIBED THREE TIMES A DAY)
     Dates: start: 202206
  14. BIOTIN [Concomitant]
     Active Substance: BIOTIN
     Dosage: 10000 UG, 1X/DAY
     Dates: start: 202203

REACTIONS (4)
  - Feeling abnormal [Not Recovered/Not Resolved]
  - Asthenia [Not Recovered/Not Resolved]
  - Euphoric mood [Unknown]
  - Contraindicated product administered [Unknown]

NARRATIVE: CASE EVENT DATE: 20221226
